FAERS Safety Report 5047310-5 (Version None)
Quarter: 2006Q3

REPORT INFORMATION
  Report Type: 
  Country: None (occurrence: None)
  Receive Date: 20060711
  Receipt Date: 20060628
  Transmission Date: 20061208
  Serious: Yes (Hospitalization)
  Sender: FDA-Public Use
  Company Number: 2006GB01113

PATIENT
  Age: 76 Year
  Sex: Male

DRUGS (1)
  1. ZOLADEX [Suspect]
     Route: 058
     Dates: start: 20060621

REACTIONS (4)
  - HYPERTENSION [None]
  - MALAISE [None]
  - MEDICATION ERROR [None]
  - WRONG DRUG ADMINISTERED [None]
